FAERS Safety Report 10706748 (Version 1)
Quarter: 2015Q1

REPORT INFORMATION
  Report Type: Spontaneous
  Country: US (occurrence: None)
  Receive Date: 20150112
  Receipt Date: 20150112
  Transmission Date: 20150721
  Serious: No
  Sender: FDA-Public Use
  Company Number: None

PATIENT
  Age: 60 Year

DRUGS (1)
  1. XANAX [Suspect]
     Active Substance: ALPRAZOLAM
     Indication: ANXIETY
     Dosage: TOOK MEDICATION 1 TIME
     Dates: start: 20150107

REACTIONS (2)
  - Anger [None]
  - Feeling of despair [None]

NARRATIVE: CASE EVENT DATE: 20150108
